FAERS Safety Report 9451059 (Version 2)
Quarter: 2013Q3

REPORT INFORMATION
  Report Type: Spontaneous
  Country: US (occurrence: None)
  Receive Date: 20130807
  Receipt Date: 20130823
  Transmission Date: 20140515
  Serious: Yes (Hospitalization)
  Sender: FDA-Public Use
  Company Number: AUR-APL-2013-06436

PATIENT
  Sex: Female

DRUGS (1)
  1. SERTRALINE (SERTRALINE) [Suspect]
     Indication: PRODUCT USED FOR UNKNOWN INDICATION

REACTIONS (5)
  - Blood thyroid stimulating hormone decreased [None]
  - Feeling abnormal [None]
  - Feeling abnormal [None]
  - Fatigue [None]
  - Decreased appetite [None]
